FAERS Safety Report 23123126 (Version 2)
Quarter: 2023Q4

REPORT INFORMATION
  Report Type: Report from Study
  Country: US (occurrence: US)
  Receive Date: 20231030
  Receipt Date: 20231205
  Transmission Date: 20240110
  Serious: Yes (Other)
  Sender: FDA-Public Use
  Company Number: US-AUROBINDO-AUR-APL-2023-065619

PATIENT
  Sex: Male
  Weight: 62.96 kg

DRUGS (1)
  1. PRALATREXATE [Suspect]
     Active Substance: PRALATREXATE
     Indication: Product used for unknown indication
     Dosage: 50.7 MILLIGRAM, EVERY WEEK
     Route: 042
     Dates: start: 20231012, end: 20231012

REACTIONS (1)
  - Stomatitis [Recovering/Resolving]

NARRATIVE: CASE EVENT DATE: 20231019
